FAERS Safety Report 9229607 (Version 4)
Quarter: 2013Q4

REPORT INFORMATION
  Report Type: Spontaneous
  Country: FR (occurrence: FR)
  Receive Date: 20130414
  Receipt Date: 20131016
  Transmission Date: 20140711
  Serious: Yes (Other)
  Sender: FDA-Public Use
  Company Number: FR-US-EMD SERONO, INC.-7203300

PATIENT
  Age: 15 Year
  Sex: Male
  Weight: 50 kg

DRUGS (1)
  1. SAIZEN [Suspect]
     Indication: FOETAL GROWTH RESTRICTION
     Dosage: 0.069 MG/KG/D
     Route: 058
     Dates: start: 20090717

REACTIONS (2)
  - Epilepsy [Not Recovered/Not Resolved]
  - Prescribed overdose [Recovered/Resolved]
